FAERS Safety Report 16619321 (Version 2)
Quarter: 2019Q3

REPORT INFORMATION
  Report Type: Report from Study
  Country: US (occurrence: US)
  Receive Date: 20190723
  Receipt Date: 20190829
  Transmission Date: 20191004
  Serious: Yes (Hospitalization, Other)
  Sender: FDA-Public Use
  Company Number: US-GILEAD-2019-0415044

PATIENT
  Age: 62 Year
  Sex: Female
  Weight: 102.04 kg

DRUGS (28)
  1. LUMIGAN [Concomitant]
     Active Substance: BIMATOPROST
  2. ALBUTEROL [SALBUTAMOL] [Concomitant]
     Active Substance: ALBUTEROL
  3. AMBRISENTAN [Suspect]
     Active Substance: AMBRISENTAN
     Indication: HYPERTENSION
  4. HYDROXYZINE HCL [Concomitant]
     Active Substance: HYDROXYZINE HYDROCHLORIDE
  5. LYRICA [Concomitant]
     Active Substance: PREGABALIN
  6. FOLIC ACID. [Concomitant]
     Active Substance: FOLIC ACID
  7. PROAIR [FLUTICASONE PROPIONATE] [Concomitant]
     Active Substance: FLUTICASONE PROPIONATE
  8. OPSUMIT [Concomitant]
     Active Substance: MACITENTAN
  9. CALCIUM CARBONATE/VITAMIN D3 [Concomitant]
     Active Substance: CALCIUM CARBONATE\CHOLECALCIFEROL
  10. OLANZAPINE. [Concomitant]
     Active Substance: OLANZAPINE
  11. ASA [Concomitant]
     Active Substance: ASPIRIN
  12. NICOTINE. [Concomitant]
     Active Substance: NICOTINE
  13. NYSTATIN. [Concomitant]
     Active Substance: NYSTATIN
  14. CLONAZEPAM. [Concomitant]
     Active Substance: CLONAZEPAM
  15. ADEMPAS [Concomitant]
     Active Substance: RIOCIGUAT
  16. VENLAFAXINE [Concomitant]
     Active Substance: VENLAFAXINE HYDROCHLORIDE
  17. AMBRISENTAN [Suspect]
     Active Substance: AMBRISENTAN
     Indication: PULMONARY HYPERTENSION
     Dosage: 10 MG, QD
     Route: 065
     Dates: start: 20190531
  18. ALENDRONATE [Concomitant]
     Active Substance: ALENDRONATE SODIUM
  19. TRAZODONE [Concomitant]
     Active Substance: TRAZODONE HYDROCHLORIDE
  20. CITRACAL [CALCIUM CITRATE] [Concomitant]
     Active Substance: CALCIUM CITRATE
  21. ZINC. [Concomitant]
     Active Substance: ZINC
  22. BRIMONIDINE [Concomitant]
     Active Substance: BRIMONIDINE TARTRATE
  23. NALTREXONE [Concomitant]
     Active Substance: NALTREXONE
  24. PANTOPRAZOLE [Concomitant]
     Active Substance: PANTOPRAZOLE
  25. PREDNISONE. [Concomitant]
     Active Substance: PREDNISONE
  26. MULTIVITAMIN AND MINERAL [Concomitant]
  27. ANORO ELLIPTA [Concomitant]
     Active Substance: UMECLIDINIUM BROMIDE\VILANTEROL TRIFENATATE
  28. VITAMIN B12 [Concomitant]
     Active Substance: CYANOCOBALAMIN

REACTIONS (4)
  - Back pain [Unknown]
  - Pneumonia [Recovered/Resolved]
  - Chronic obstructive pulmonary disease [Unknown]
  - Tremor [Not Recovered/Not Resolved]

NARRATIVE: CASE EVENT DATE: 20190611
